FAERS Safety Report 6355200-0 (Version None)
Quarter: 2009Q3

REPORT INFORMATION
  Report Type: 
  Country: None (occurrence: None)
  Receive Date: 20090909
  Receipt Date: 20090825
  Transmission Date: 20100115
  Serious: Yes (Other)
  Sender: FDA-Public Use
  Company Number: AUR-APL-2009-00497

PATIENT
  Age: 74 Year
  Sex: Male

DRUGS (6)
  1. SIMVASTATIN [Suspect]
  2. ADOLAT [Concomitant]
  3. ALLOPURINOL [Concomitant]
  4. DIGOXIN [Concomitant]
  5. PERINDOPRIL [Concomitant]
  6. WARFARIN SODIUM [Concomitant]

REACTIONS (5)
  - ARTHRALGIA [None]
  - BLEPHAROSPASM [None]
  - HYPOTHALAMO-PITUITARY DISORDER [None]
  - VISUAL FIELD DEFECT [None]
  - VISUAL PATHWAY DISORDER [None]
